FAERS Safety Report 17666120 (Version 1)
Quarter: 2020Q2

REPORT INFORMATION
  Report Type: Report from Study
  Country: US (occurrence: US)
  Receive Date: 20200414
  Receipt Date: 20200414
  Transmission Date: 20200713
  Serious: No
  Sender: FDA-Public Use
  Company Number: US-BIOVITRUM-2020US1620

PATIENT
  Sex: Male

DRUGS (1)
  1. KINERET [Suspect]
     Active Substance: ANAKINRA
     Indication: PRODUCT USED FOR UNKNOWN INDICATION
     Route: 058
     Dates: start: 20200324

REACTIONS (5)
  - Somnolence [Unknown]
  - Injection site pain [Unknown]
  - Feeling abnormal [Unknown]
  - Coronavirus infection [Unknown]
  - Malaise [Unknown]
